FAERS Safety Report 10641459 (Version 3)
Quarter: 2015Q1

REPORT INFORMATION
  Report Type: Spontaneous
  Country: US (occurrence: US)
  Receive Date: 20141209
  Receipt Date: 20150219
  Transmission Date: 20150720
  Serious: Yes (Other)
  Sender: FDA-Public Use
  Company Number: US-GLAXOSMITHKLINE-A0986395A

PATIENT
  Age: 25 Year
  Sex: Female

DRUGS (10)
  1. BENLYSTA [Suspect]
     Active Substance: BELIMUMAB
     Indication: SYSTEMIC LUPUS ERYTHEMATOSUS
  2. PREDNISONE. [Concomitant]
     Active Substance: PREDNISONE
  3. IMURAN [Concomitant]
     Active Substance: AZATHIOPRINE
  4. CELLCEPT [Concomitant]
     Active Substance: MYCOPHENOLATE MOFETIL\MYCOPHENOLATE MOFETIL HYDROCHLORIDE
  5. PLAQUENIL [Concomitant]
     Active Substance: HYDROXYCHLOROQUINE SULFATE
  6. BENLYSTA [Suspect]
     Active Substance: BELIMUMAB
     Indication: CUTANEOUS LUPUS ERYTHEMATOSUS
     Dosage: UNK, U
     Route: 042
  7. IMIPRAMINE [Concomitant]
     Active Substance: IMIPRAMINE
  8. RUDOTEL [Concomitant]
  9. BENADRYL [Concomitant]
     Active Substance: DIPHENHYDRAMINE HYDROCHLORIDE
     Route: 048
  10. CORTISONE [Concomitant]
     Active Substance: CORTISONE\HYDROCORTISONE

REACTIONS (6)
  - Skin burning sensation [Not Recovered/Not Resolved]
  - Rash [Not Recovered/Not Resolved]
  - Rash generalised [Not Recovered/Not Resolved]
  - Renal failure [Unknown]
  - Rash pustular [Not Recovered/Not Resolved]
  - Arthralgia [Recovering/Resolving]

NARRATIVE: CASE EVENT DATE: 20120712
